FAERS Safety Report 4629444-X (Version None)
Quarter: 2005Q2

REPORT INFORMATION
  Report Type: 
  Country: None (occurrence: None)
  Receive Date: 20050405
  Receipt Date: 20050323
  Transmission Date: 20051028
  Serious: Yes (Hospitalization)
  Sender: FDA-Public Use
  Company Number: 2005048626

PATIENT
  Age: 39 Year
  Sex: Male

DRUGS (1)
  1. SOMAVERT [Suspect]
     Indication: ACROMEGALY
     Dosage: 15 MG (15 MG, DAILY)
     Dates: start: 20030408

REACTIONS (1)
  - CHOLECYSTECTOMY [None]
